FAERS Safety Report 10491670 (Version 1)
Quarter: 2014Q4

REPORT INFORMATION
  Report Type: Spontaneous
  Country: US (occurrence: US)
  Receive Date: 20141002
  Receipt Date: 20141002
  Transmission Date: 20150528
  Serious: No
  Sender: FDA-Public Use
  Company Number: US-GLAXOSMITHKLINE-A1057491A

PATIENT
  Sex: Female

DRUGS (3)
  1. COLCRYS [Concomitant]
     Active Substance: COLCHICINE
  2. ALLOPURINOL. [Concomitant]
     Active Substance: ALLOPURINOL
  3. ADVAIR HFA [Suspect]
     Active Substance: FLUTICASONE PROPIONATE\SALMETEROL XINAFOATE
     Indication: CHRONIC OBSTRUCTIVE PULMONARY DISEASE
     Dosage: 1PUFF BEFORE MEALS
     Route: 055
     Dates: start: 2009

REACTIONS (3)
  - Feeling abnormal [Unknown]
  - Gout [Unknown]
  - Cataract [Unknown]
